FAERS Safety Report 5984558-7 (Version None)
Quarter: 2008Q4

REPORT INFORMATION
  Report Type: 
  Country: None (occurrence: None)
  Receive Date: 20081208
  Receipt Date: 20081201
  Transmission Date: 20090506
  Serious: Yes (Death)
  Sender: FDA-Public Use
  Company Number: US-CELGENEUS-163-21880-08120081

PATIENT
  Sex: Male

DRUGS (5)
  1. REVLIMID [Suspect]
     Indication: MULTIPLE MYELOMA
     Route: 048
     Dates: start: 20081014, end: 20080101
  2. THALOMID [Suspect]
     Indication: MULTIPLE MYELOMA
     Dosage: 100-50MG
     Route: 048
     Dates: start: 20080318, end: 20081001
  3. THALOMID [Suspect]
     Dosage: 250-200MG
     Route: 048
     Dates: start: 20070116, end: 20070101
  4. THALOMID [Suspect]
     Route: 048
     Dates: start: 20060824
  5. THALOMID [Suspect]
     Dosage: 200-250
     Route: 048
     Dates: start: 20060708, end: 20060801

REACTIONS (4)
  - BALANCE DISORDER [None]
  - DEATH [None]
  - DISEASE PROGRESSION [None]
  - HYPOAESTHESIA [None]
